FAERS Safety Report 11443112 (Version 1)
Quarter: 2015Q3

REPORT INFORMATION
  Report Type: Spontaneous
  Country: US (occurrence: US)
  Receive Date: 20150901
  Receipt Date: 20150901
  Transmission Date: 20151125
  Serious: Yes (Death, Other)
  Sender: FDA-Public Use
  Company Number: US-GLAXOSMITHKLINE-US2015GSK124488

PATIENT
  Age: 55 Year
  Sex: Male

DRUGS (2)
  1. HYCAMTIN [Suspect]
     Active Substance: TOPOTECAN HYDROCHLORIDE
     Dosage: 4.5 MG, QD FOR 5 DAYS Q 21 DAYS
     Route: 048
     Dates: start: 20150815, end: 20150823
  2. HYCAMTIN [Suspect]
     Active Substance: TOPOTECAN HYDROCHLORIDE
     Indication: CARCINOID TUMOUR OF THE STOMACH
     Dosage: 4.5 MG, QD FOR 5 DAYS Q 21 DAYS
     Route: 048
     Dates: start: 20150815, end: 20150823

REACTIONS (1)
  - Death [Fatal]

NARRATIVE: CASE EVENT DATE: 20150823
